FAERS Safety Report 9576469 (Version 1)
Quarter: 2013Q4

REPORT INFORMATION
  Report Type: Spontaneous
  Country: US (occurrence: US)
  Receive Date: 20131001
  Receipt Date: 20131001
  Transmission Date: 20140711
  Serious: No
  Sender: FDA-Public Use
  Company Number: US-AMGEN-USASP2013003454

PATIENT
  Sex: Male
  Weight: 120 kg

DRUGS (10)
  1. ENBREL [Suspect]
     Indication: PRODUCT USED FOR UNKNOWN INDICATION
     Dosage: 50 MG, QWK
     Route: 058
  2. SINGULAIR [Concomitant]
     Dosage: 10 MG, UNK
  3. AMLODIPINE [Concomitant]
     Dosage: 10 MG, UNK
  4. LIPITOR [Concomitant]
     Dosage: 20 MG, UNK
  5. VICODIN [Concomitant]
     Dosage: 5-500 MG
  6. DIOVAN [Concomitant]
     Dosage: 160 MG, UNK
  7. CARVEDILOL [Concomitant]
     Dosage: 12.5 MG, UNK
  8. MULTI [Concomitant]
     Dosage: UNK
  9. BABY ASPIRIN [Concomitant]
     Dosage: 81 MG, CHW
  10. HYDROCHLOROTHIAZIDE WITH TRIAMTERENE [Concomitant]
     Dosage: 25-50 MG

REACTIONS (1)
  - Sinusitis [Unknown]
